FAERS Safety Report 5122622-5 (Version None)
Quarter: 2006Q4

REPORT INFORMATION
  Report Type: 
  Country: None (occurrence: None)
  Receive Date: 20061005
  Receipt Date: 20061005
  Transmission Date: 20070319
  Serious: Yes (Other)
  Sender: FDA-Public Use
  Company Number: None

PATIENT
  Sex: Female

DRUGS (1)
  1. LUCENTIS [Suspect]
     Indication: MACULAR DEGENERATION
     Dosage: 1 Q4 WEEKS INTRAOCULAR
     Route: 031
     Dates: start: 20060927, end: 20060927

REACTIONS (1)
  - ENDOPHTHALMITIS [None]
